FAERS Safety Report 13496890 (Version 1)
Quarter: 2017Q2

REPORT INFORMATION
  Report Type: Spontaneous
  Country: US (occurrence: US)
  Receive Date: 20170428
  Receipt Date: 20170428
  Transmission Date: 20170830
  Serious: No
  Sender: FDA-Public Use
  Company Number: US-009507513-1704USA000685

PATIENT
  Age: 17 Year
  Sex: Female
  Weight: 66.3 kg

DRUGS (1)
  1. NEXPLANON [Suspect]
     Active Substance: ETONOGESTREL
     Indication: CONTRACEPTION
     Dosage: UNK
     Route: 059
     Dates: start: 20160525

REACTIONS (4)
  - Migration of implanted drug [Not Recovered/Not Resolved]
  - Complication of device removal [Unknown]
  - Complication associated with device [Not Recovered/Not Resolved]
  - Menstruation irregular [Unknown]

NARRATIVE: CASE EVENT DATE: 2016
